FAERS Safety Report 4414612-2 (Version None)
Quarter: 2004Q3

REPORT INFORMATION
  Report Type: 
  Country: None (occurrence: None)
  Receive Date: 20040729
  Receipt Date: 20040714
  Transmission Date: 20050211
  Serious: Yes (Disabling, Congenital Anomaly)
  Sender: FDA-Public Use
  Company Number: 2004AP02998

PATIENT
  Age: 57 Year
  Sex: Male

DRUGS (8)
  1. IRESSA [Suspect]
     Indication: NON-SMALL CELL LUNG CANCER
     Dosage: 250 MG DAILY PO
     Route: 048
     Dates: start: 20040428, end: 20040527
  2. LOXOPROFEN [Suspect]
     Indication: HEADACHE
     Dosage: 60 MG DAILY PO
     Route: 048
     Dates: start: 20040414, end: 20040530
  3. VOLTAREN [Suspect]
     Indication: GOUT
     Dosage: 50 MG DAILY RC
     Route: 054
     Dates: start: 20040520, end: 20040530
  4. VOLTAREN [Suspect]
     Indication: HEADACHE
     Dosage: 50 MG DAILY RC
     Route: 054
     Dates: start: 20040520, end: 20040530
  5. TAKEPRON [Concomitant]
  6. MUCOSTA [Concomitant]
  7. CEFOTIAM HYDROCHLORIDE [Concomitant]
  8. SELTOUCH [Concomitant]

REACTIONS (17)
  - ABDOMINAL PAIN UPPER [None]
  - ALANINE AMINOTRANSFERASE INCREASED [None]
  - ANOREXIA [None]
  - ASPARTATE AMINOTRANSFERASE INCREASED [None]
  - BLOOD ALKALINE PHOSPHATASE INCREASED [None]
  - BLOOD BILIRUBIN INCREASED [None]
  - DEHYDRATION [None]
  - DIARRHOEA [None]
  - GAMMA-GLUTAMYLTRANSFERASE INCREASED [None]
  - GASTRIC MUCOSAL LESION [None]
  - GOUT [None]
  - LIVER DISORDER [None]
  - MALAISE [None]
  - NAUSEA [None]
  - PYREXIA [None]
  - RASH [None]
  - URTICARIA [None]
